FAERS Safety Report 11120974 (Version 1)
Quarter: 2015Q2

REPORT INFORMATION
  Report Type: Spontaneous
  Country: US (occurrence: None)
  Receive Date: 20150515
  Receipt Date: 20150515
  Transmission Date: 20150821
  Serious: Yes (Hospitalization, Other)
  Sender: FDA-Public Use
  Company Number: US-ZYDUS-007972

PATIENT
  Age: 70 Year
  Sex: Male

DRUGS (1)
  1. METFORMIN [Suspect]
     Active Substance: METFORMIN HYDROCHLORIDE
     Indication: TYPE 2 DIABETES MELLITUS
     Dosage: 500.00-MG-2.00 TIMES PER-1.0DAYS

REACTIONS (6)
  - Heart sounds abnormal [None]
  - Haemodialysis [None]
  - Chest pain [None]
  - Rales [None]
  - Metabolic acidosis [None]
  - Dyspnoea [None]
